FAERS Safety Report 22955779 (Version 2)
Quarter: 2024Q4

REPORT INFORMATION
  Report Type: Report from Study
  Country: CO (occurrence: CO)
  Receive Date: 20230919
  Receipt Date: 20241213
  Transmission Date: 20250114
  Serious: Yes (Other)
  Sender: ABBVIE
  Company Number: CO-ABBVIE-5410840

PATIENT
  Age: 70 Year
  Sex: Female
  Weight: 51 kg

DRUGS (3)
  1. VENCLEXTA [Suspect]
     Active Substance: VENETOCLAX
     Indication: Acute myeloid leukaemia
     Dosage: FORM STRENGTH: 100 MILLIGRAM
     Route: 048
     Dates: start: 20211126, end: 20230827
  2. VENCLEXTA [Suspect]
     Active Substance: VENETOCLAX
     Indication: Acute myeloid leukaemia
     Dosage: FORM STRENGTH: 100 MILLIGRAM. 14-DAY CYCLES
     Route: 048
     Dates: start: 20241118, end: 20241203
  3. AZACITIDINE [Concomitant]
     Active Substance: AZACITIDINE
     Indication: Adjuvant therapy
     Dosage: FORM OF ADMINISTRATION: AMPOULLE
     Route: 058
     Dates: start: 20230816, end: 20230822

REACTIONS (3)
  - Breast mass [Recovered/Resolved]
  - Weight increased [Recovering/Resolving]
  - Wound complication [Recovering/Resolving]

NARRATIVE: CASE EVENT DATE: 20230101
